FAERS Safety Report 8397065-1 (Version None)
Quarter: 2012Q2

REPORT INFORMATION
  Report Type: 
  Country: None (occurrence: None)
  Receive Date: 20120530
  Receipt Date: 20120502
  Transmission Date: 20120825
  Serious: No
  Sender: FDA-Public Use
  Company Number: US-BAYER-2012-048148

PATIENT
  Age: 80 Year
  Sex: Female
  Weight: 91 kg

DRUGS (4)
  1. MULTI-VITAMIN [Concomitant]
  2. ALEVE (CAPLET) [Suspect]
     Indication: ARTHRALGIA
     Dosage: 2 U, UNK
     Route: 048
  3. SYNTHROID [Concomitant]
     Route: 048
  4. VERAPAMIL HCL [Concomitant]

REACTIONS (1)
  - RASH [None]
